FAERS Safety Report 21625237 (Version 1)
Quarter: 2022Q4

REPORT INFORMATION
  Report Type: Spontaneous
  Country: CA (occurrence: CA)
  Receive Date: 20221122
  Receipt Date: 20221122
  Transmission Date: 20230112
  Serious: Yes (Other)
  Sender: FDA-Public Use
  Company Number: CA-SAMSUNG BIOEPIS-SB-2022-29193

PATIENT
  Age: 22 Year
  Sex: Female
  Weight: 39 kg

DRUGS (2)
  1. INFLIXIMAB [Suspect]
     Active Substance: INFLIXIMAB
     Indication: Crohn^s disease
     Dosage: UNKNOWN
     Route: 042
  2. PREDNISONE [Concomitant]
     Active Substance: PREDNISONE
     Indication: Product used for unknown indication
     Dosage: UNKNOWN
     Route: 065

REACTIONS (6)
  - Weight increased [Unknown]
  - Arthralgia [Unknown]
  - Arthritis [Unknown]
  - Autoimmune disorder [Unknown]
  - Dry skin [Unknown]
  - Inappropriate schedule of product administration [Unknown]
